FAERS Safety Report 6078698-4 (Version None)
Quarter: 2009Q1

REPORT INFORMATION
  Report Type: 
  Country: None (occurrence: None)
  Receive Date: 20090216
  Receipt Date: 20090206
  Transmission Date: 20090719
  Serious: Yes (Other)
  Sender: FDA-Public Use
  Company Number: US-AMGEN-QUU300301

PATIENT
  Sex: Male
  Weight: 101.7 kg

DRUGS (11)
  1. ENBREL [Suspect]
     Indication: PSORIASIS
     Route: 058
     Dates: start: 20060524, end: 20080801
  2. ENBREL [Suspect]
     Indication: PSORIATIC ARTHROPATHY
  3. NORVASC [Concomitant]
  4. PLAVIX [Concomitant]
  5. ADVAIR DISKUS 100/50 [Concomitant]
  6. NEXIUM [Concomitant]
  7. ASPIRIN [Concomitant]
  8. LIPITOR [Concomitant]
  9. ATACAND [Concomitant]
  10. FLONASE [Concomitant]
  11. COMBIVENT [Concomitant]
     Route: 055

REACTIONS (16)
  - ANGINA UNSTABLE [None]
  - ASTHMA [None]
  - CARDIAC MURMUR [None]
  - CHEST DISCOMFORT [None]
  - CHEST PAIN [None]
  - CORONARY ARTERY DISEASE [None]
  - DIZZINESS [None]
  - DYSPNOEA [None]
  - HYPERHIDROSIS [None]
  - HYPERTENSION [None]
  - NAUSEA [None]
  - PRESYNCOPE [None]
  - PRODUCTIVE COUGH [None]
  - PSORIASIS [None]
  - PSORIATIC ARTHROPATHY [None]
  - VENTRICULAR EXTRASYSTOLES [None]
